FAERS Safety Report 6469615-3 (Version None)
Quarter: 2009Q4

REPORT INFORMATION
  Report Type: 
  Country: None (occurrence: None)
  Receive Date: 20091203
  Receipt Date: 20091123
  Transmission Date: 20100525
  Serious: Yes (Other)
  Sender: FDA-Public Use
  Company Number: GB-JNJFOC-20091107892

PATIENT

DRUGS (10)
  1. DARUNAVIR [Suspect]
     Indication: HIV INFECTION
     Route: 065
  2. RITONAVIR [Suspect]
     Indication: HIV INFECTION
     Route: 065
  3. DIDANOSINE [Suspect]
     Indication: HIV INFECTION
     Route: 065
  4. EFAVIRENZ [Suspect]
     Indication: HIV INFECTION
     Route: 065
  5. LAMIVUDINE [Suspect]
     Indication: HIV INFECTION
     Route: 065
  6. ABACAVIR [Suspect]
     Indication: HIV INFECTION
     Route: 065
  7. STAVUDINE [Suspect]
     Indication: HIV INFECTION
     Route: 065
  8. TENOFOVIR [Suspect]
     Indication: HIV INFECTION
     Route: 065
  9. EMTRICITABINE [Suspect]
     Indication: HIV INFECTION
     Route: 065
  10. ATAZANAVIR [Suspect]
     Indication: HIV INFECTION
     Route: 065

REACTIONS (1)
  - PORTAL HYPERTENSION [None]
